FAERS Safety Report 7476137-X (Version None)
Quarter: 2011Q2

REPORT INFORMATION
  Report Type: 
  Country: None (occurrence: None)
  Receive Date: 20110510
  Receipt Date: 20110510
  Transmission Date: 20111010
  Serious: Yes (Hospitalization)
  Sender: FDA-Public Use
  Company Number: None

PATIENT
  Age: 56 Year
  Sex: Male
  Weight: 74.3899 kg

DRUGS (1)
  1. SIMVASTATIN [Suspect]
     Indication: MYOCARDIAL INFARCTION
     Dosage: 80MG 1 AT NIGHT PO
     Route: 048
     Dates: start: 20100401, end: 20110201

REACTIONS (2)
  - IMPAIRED WORK ABILITY [None]
  - BACK PAIN [None]
